FAERS Safety Report 6736656-8 (Version None)
Quarter: 2010Q2

REPORT INFORMATION
  Report Type: 
  Country: None (occurrence: None)
  Receive Date: 20100521
  Receipt Date: 20100511
  Transmission Date: 20101027
  Serious: Yes (Disabling, Other)
  Sender: FDA-Public Use
  Company Number: US-ELI_LILLY_AND_COMPANY-US201005003305

PATIENT
  Age: 58 Year
  Sex: Male

DRUGS (1)
  1. EFFIENT [Suspect]
     Dosage: 10 MG, UNKNOWN
     Dates: start: 20100415, end: 20100401

REACTIONS (3)
  - CEREBROVASCULAR ACCIDENT [None]
  - MONOPLEGIA [None]
  - TRANSIENT ISCHAEMIC ATTACK [None]
